FAERS Safety Report 4790146-0 (Version None)
Quarter: 2005Q4

REPORT INFORMATION
  Report Type: 
  Country: None (occurrence: None)
  Receive Date: 20051006
  Receipt Date: 20050914
  Transmission Date: 20060501
  Serious: Yes (Hospitalization)
  Sender: FDA-Public Use
  Company Number: PHBS2005BE13703

PATIENT
  Age: 65 Year
  Sex: Male

DRUGS (4)
  1. GLEEVEC [Suspect]
     Indication: CHRONIC MYELOID LEUKAEMIA
     Route: 048
     Dates: start: 20050601
  2. ALLOPURINOL [Concomitant]
  3. INDAPAMIDE [Concomitant]
  4. LORAZEPAM [Concomitant]

REACTIONS (4)
  - CEREBROVASCULAR ACCIDENT [None]
  - EOSINOPHILIA [None]
  - HYPERSENSITIVITY [None]
  - RASH [None]
